FAERS Safety Report 21056869 (Version 1)
Quarter: 2022Q3

REPORT INFORMATION
  Report Type: Spontaneous
  Country: JP (occurrence: JP)
  Receive Date: 20220708
  Receipt Date: 20220708
  Transmission Date: 20221027
  Serious: Yes (Other)
  Sender: FDA-Public Use
  Company Number: JP-ASTELLAS-2022JP010141

PATIENT
  Sex: Male

DRUGS (3)
  1. MIRABEGRON [Interacting]
     Active Substance: MIRABEGRON
     Indication: Pollakiuria
     Dosage: UNK UNK, UNKNOWN FREQ.
     Route: 048
  2. MIRABEGRON [Interacting]
     Active Substance: MIRABEGRON
     Dosage: 50 MG, ONCE DAILY, EVENING
     Route: 048
  3. CLONAZEPAM [Concomitant]
     Active Substance: CLONAZEPAM
     Indication: Epilepsy
     Dosage: UNK UNK, AS NEEDED
     Route: 065

REACTIONS (7)
  - Diabetes mellitus [Unknown]
  - Myoclonus [Unknown]
  - Pollakiuria [Unknown]
  - Somnolence [Unknown]
  - Abdominal distension [Unknown]
  - Intentional product misuse [Unknown]
  - Food interaction [Unknown]
